FAERS Safety Report 6187344-0 (Version None)
Quarter: 2009Q2

REPORT INFORMATION
  Report Type: 
  Country: None (occurrence: None)
  Receive Date: 20090512
  Receipt Date: 20090501
  Transmission Date: 20091009
  Serious: Yes (Hospitalization)
  Sender: FDA-Public Use
  Company Number: A0731237A

PATIENT
  Age: 46 Year
  Sex: Female
  Weight: 135.5 kg

DRUGS (5)
  1. AVANDIA [Suspect]
     Dosage: 8MG PER DAY
     Route: 048
     Dates: start: 20041001, end: 20070101
  2. INSULIN [Concomitant]
  3. LANTUS [Concomitant]
     Dates: start: 20020101, end: 20070101
  4. AMARYL [Concomitant]
     Dates: start: 20050101, end: 20050101
  5. SINGULAIR [Concomitant]

REACTIONS (3)
  - INJURY [None]
  - MYOCARDIAL INFARCTION [None]
  - PAIN [None]
